FAERS Safety Report 9385006 (Version 4)
Quarter: 2013Q4

REPORT INFORMATION
  Report Type: Report from Study
  Country: DE (occurrence: DE)
  Receive Date: 20130705
  Receipt Date: 20131017
  Transmission Date: 20140711
  Serious: Yes (Hospitalization)
  Sender: FDA-Public Use
  Company Number: DE-ASTELLAS-2013US006997

PATIENT
  Age: 66 Year
  Sex: Female

DRUGS (12)
  1. ERLOTINIB TABLET [Suspect]
     Indication: NON-SMALL CELL LUNG CANCER
     Dosage: 150 MG, UID/QD
     Route: 048
     Dates: start: 20130212, end: 20130609
  2. PLACEBO [Suspect]
     Indication: NON-SMALL CELL LUNG CANCER
     Dosage: UNK. EVERY 3 WEEKS
     Route: 042
     Dates: start: 20130212
  3. PLACEBO [Suspect]
     Dosage: UNK EVERY 3 WKS
     Route: 042
     Dates: start: 20130528
  4. CITALOPRAM [Concomitant]
     Indication: DEPRESSION
     Dosage: UNK
     Route: 065
     Dates: start: 2003
  5. PAMIDRONATE [Concomitant]
     Indication: METASTASES TO BONE
     Dosage: UNK
     Route: 065
     Dates: start: 20110923
  6. NOVALGIN                           /06276704/ [Concomitant]
     Indication: PAIN
     Dosage: UNK
     Route: 065
     Dates: start: 20130218
  7. LOPERAMIDE [Concomitant]
     Indication: DIARRHOEA
     Dosage: UNK
     Route: 065
     Dates: start: 20130326
  8. DERMATOP [Concomitant]
     Indication: DERMATITIS ACNEIFORM
     Dosage: UNK
     Route: 065
     Dates: start: 20130326
  9. HEPARIN                            /00027704/ [Concomitant]
     Indication: OEDEMA PERIPHERAL
     Dosage: UNK
     Route: 065
     Dates: start: 20130424
  10. LYRICA [Concomitant]
     Indication: DEPRESSION
     Dosage: UNK
     Route: 065
     Dates: start: 20130521
  11. PALEXIA [Concomitant]
     Indication: MUSCULOSKELETAL PAIN
     Dosage: UNK
     Route: 065
     Dates: start: 20130521
  12. FRAXIPARIN [Concomitant]
     Indication: PULMONARY EMBOLISM
     Dosage: UNK
     Route: 065
     Dates: start: 20130612

REACTIONS (1)
  - Pulmonary embolism [Recovered/Resolved]
